FAERS Safety Report 6083803-X (Version None)
Quarter: 2009Q1

REPORT INFORMATION
  Report Type: 
  Country: None (occurrence: None)
  Receive Date: 20090217
  Receipt Date: 20090217
  Transmission Date: 20090719
  Serious: Yes (Other)
  Sender: FDA-Public Use
  Company Number: None

PATIENT
  Sex: Female
  Weight: 121.564 kg

DRUGS (2)
  1. ZOLOFT [Suspect]
     Indication: ANXIETY
     Dosage: 100 MG ONCE QD
     Dates: start: 20080301
  2. ZOLOFT [Suspect]
     Indication: DEPRESSION
     Dosage: 100 MG ONCE QD
     Dates: start: 20080301

REACTIONS (4)
  - DEPRESSION [None]
  - DRUG INEFFECTIVE [None]
  - FATIGUE [None]
  - OBSESSIVE-COMPULSIVE DISORDER [None]
